FAERS Safety Report 13185947 (Version 3)
Quarter: 2017Q2

REPORT INFORMATION
  Report Type: Spontaneous
  Country: US (occurrence: US)
  Receive Date: 20170203
  Receipt Date: 20170419
  Transmission Date: 20170830
  Serious: Yes (Other)
  Sender: FDA-Public Use
  Company Number: US-AMGEN-USASP2017016038

PATIENT
  Age: 54 Year
  Sex: Female

DRUGS (5)
  1. OSPHENA [Concomitant]
     Active Substance: OSPEMIFENE
     Indication: VAGINAL DISORDER
     Dosage: UNK
     Dates: start: 20170119
  2. PROZAC [Concomitant]
     Active Substance: FLUOXETINE HYDROCHLORIDE
     Indication: DEPRESSION
     Dosage: UNK
     Dates: start: 20170119
  3. WELLBUTRIN [Concomitant]
     Active Substance: BUPROPION HYDROCHLORIDE
     Dosage: UNK
     Dates: start: 20170227
  4. ENBREL [Suspect]
     Active Substance: ETANERCEPT
     Dosage: UNK
     Route: 065
  5. ENBREL [Suspect]
     Active Substance: ETANERCEPT
     Indication: PSORIATIC ARTHROPATHY
     Dosage: 50 MG, QWK
     Route: 065
     Dates: start: 20170118

REACTIONS (8)
  - Lower respiratory tract infection [Recovered/Resolved]
  - Injection site erythema [Unknown]
  - Injection site induration [Unknown]
  - Injection site reaction [Unknown]
  - Injection site swelling [Unknown]
  - Viral upper respiratory tract infection [Unknown]
  - Malaise [Recovered/Resolved]
  - Injection site pruritus [Unknown]

NARRATIVE: CASE EVENT DATE: 2017
